FAERS Safety Report 11982755 (Version 1)
Quarter: 2016Q1

REPORT INFORMATION
  Report Type: Spontaneous
  Country: US (occurrence: None)
  Receive Date: 20160129
  Receipt Date: 20160129
  Transmission Date: 20160526
  Serious: Yes (Other)
  Sender: FDA-Public Use
  Company Number: None

PATIENT
  Age: 39 Year
  Sex: Female

DRUGS (3)
  1. ORACEA [Concomitant]
     Active Substance: DOXYCYCLINE
  2. AVAR LS [Concomitant]
     Active Substance: SULFACETAMIDE SODIUM\SULFUR
  3. MIRVASO [Suspect]
     Active Substance: BRIMONIDINE TARTRATE
     Indication: ROSACEA
     Dosage: APPLY TO FACE ONCE DAILY QD TOPICAL
     Route: 061
     Dates: start: 20151116, end: 20160111

REACTIONS (2)
  - Rebound effect [None]
  - Rosacea [None]

NARRATIVE: CASE EVENT DATE: 20160104
